FAERS Safety Report 13547692 (Version 3)
Quarter: 2020Q3

REPORT INFORMATION
  Report Type: Report from Study
  Country: CA (occurrence: CA)
  Receive Date: 20170515
  Receipt Date: 20200428
  Transmission Date: 20201105
  Serious: Yes (Hospitalization, Other)
  Sender: FDA-Public Use
  Company Number: PHHY2013CA089586

PATIENT
  Age: 64 Year
  Sex: Female

DRUGS (50)
  1. XOLAIR [Suspect]
     Active Substance: OMALIZUMAB
     Dosage: UNK
     Route: 058
     Dates: start: 20171128
  2. XOLAIR [Suspect]
     Active Substance: OMALIZUMAB
     Dosage: 300 MG, BIW
     Route: 058
     Dates: start: 20180501
  3. XOLAIR [Suspect]
     Active Substance: OMALIZUMAB
     Dosage: 300 MG, BIW
     Route: 058
     Dates: start: 20180626
  4. XOLAIR [Suspect]
     Active Substance: OMALIZUMAB
     Dosage: 300 MG, BIW
     Route: 058
     Dates: start: 20200313
  5. XOLAIR [Suspect]
     Active Substance: OMALIZUMAB
     Dosage: UNK
     Route: 058
     Dates: start: 20140506
  6. XOLAIR [Suspect]
     Active Substance: OMALIZUMAB
     Dosage: UNK
     Route: 058
     Dates: start: 20140603
  7. XOLAIR [Suspect]
     Active Substance: OMALIZUMAB
     Dosage: UNK
     Route: 058
     Dates: start: 20160119
  8. XOLAIR [Suspect]
     Active Substance: OMALIZUMAB
     Dosage: 150 MG, EVERY 4 WEEKS
     Route: 058
  9. XOLAIR [Suspect]
     Active Substance: OMALIZUMAB
     Dosage: UNK
     Route: 058
     Dates: start: 20170418
  10. XOLAIR [Suspect]
     Active Substance: OMALIZUMAB
     Dosage: UNK
     Route: 058
     Dates: start: 20171018
  11. XOLAIR [Suspect]
     Active Substance: OMALIZUMAB
     Dosage: 300 MG, BIW
     Route: 058
     Dates: start: 20180131
  12. XOLAIR [Suspect]
     Active Substance: OMALIZUMAB
     Dosage: UNK
     Route: 058
     Dates: start: 20180406
  13. XOLAIR [Suspect]
     Active Substance: OMALIZUMAB
     Dosage: UNK
     Route: 058
     Dates: start: 20180412
  14. XOLAIR [Suspect]
     Active Substance: OMALIZUMAB
     Dosage: 300 MG, BIW
     Route: 058
     Dates: start: 20181102
  15. ADVAIR HFA [Concomitant]
     Active Substance: FLUTICASONE PROPIONATE\SALMETEROL XINAFOATE
     Indication: PRODUCT USED FOR UNKNOWN INDICATION
     Route: 065
  16. XOLAIR [Suspect]
     Active Substance: OMALIZUMAB
     Dosage: UNK
     Route: 058
     Dates: start: 20150804
  17. XOLAIR [Suspect]
     Active Substance: OMALIZUMAB
     Dosage: UNK
     Route: 058
     Dates: start: 20160830
  18. XOLAIR [Suspect]
     Active Substance: OMALIZUMAB
     Dosage: UNK
     Route: 058
     Dates: start: 20170906
  19. XOLAIR [Suspect]
     Active Substance: OMALIZUMAB
     Dosage: UNK
     Route: 058
     Dates: start: 20171003
  20. XOLAIR [Suspect]
     Active Substance: OMALIZUMAB
     Dosage: 300 MG, BIW
     Route: 058
     Dates: start: 20180828
  21. DILTIAZEM. [Suspect]
     Active Substance: DILTIAZEM
     Dosage: 30 MG, TID
     Route: 065
  22. XOLAIR [Suspect]
     Active Substance: OMALIZUMAB
     Dosage: UNK
     Route: 058
     Dates: start: 20150609
  23. XOLAIR [Suspect]
     Active Substance: OMALIZUMAB
     Dosage: UNK
     Route: 058
     Dates: start: 20161108
  24. XOLAIR [Suspect]
     Active Substance: OMALIZUMAB
     Dosage: UNK
     Route: 058
     Dates: start: 20170920
  25. XOLAIR [Suspect]
     Active Substance: OMALIZUMAB
     Dosage: UNK
     Route: 058
     Dates: start: 20171212
  26. XOLAIR [Suspect]
     Active Substance: OMALIZUMAB
     Dosage: 300 MG, BIW
     Route: 058
     Dates: start: 20181016
  27. FLOVENT [Concomitant]
     Active Substance: FLUTICASONE PROPIONATE
     Indication: PRODUCT USED FOR UNKNOWN INDICATION
     Route: 065
  28. XOLAIR [Suspect]
     Active Substance: OMALIZUMAB
     Dosage: UNK
     Route: 058
  29. XOLAIR [Suspect]
     Active Substance: OMALIZUMAB
     Dosage: UNK
     Route: 058
     Dates: start: 20161026
  30. XOLAIR [Suspect]
     Active Substance: OMALIZUMAB
     Dosage: UNK
     Route: 058
     Dates: start: 20171227
  31. XOLAIR [Suspect]
     Active Substance: OMALIZUMAB
     Dosage: 300 MG, BIW
     Route: 058
     Dates: start: 20180418
  32. REACTINE [Concomitant]
     Indication: URTICARIA
     Dosage: UNK, BID (IN THE MORNING AND AFTERNOON)
     Route: 065
  33. XOLAIR [Suspect]
     Active Substance: OMALIZUMAB
     Dosage: UNK
     Route: 058
     Dates: start: 20130812
  34. XOLAIR [Suspect]
     Active Substance: OMALIZUMAB
     Dosage: UNK
     Route: 058
     Dates: start: 20160719
  35. XOLAIR [Suspect]
     Active Substance: OMALIZUMAB
     Dosage: 300 MG, EVERY 4 WEEKS
     Route: 058
  36. XOLAIR [Suspect]
     Active Substance: OMALIZUMAB
     Dosage: UNK
     Route: 058
     Dates: start: 20170215
  37. XOLAIR [Suspect]
     Active Substance: OMALIZUMAB
     Dosage: UNK
     Route: 058
     Dates: start: 20180221
  38. XOLAIR [Suspect]
     Active Substance: OMALIZUMAB
     Indication: ASTHMA
     Dosage: 300 MG, BIW
     Route: 058
     Dates: start: 20130730
  39. XOLAIR [Suspect]
     Active Substance: OMALIZUMAB
     Dosage: UNK, BIW
     Route: 058
     Dates: start: 20150818
  40. XOLAIR [Suspect]
     Active Substance: OMALIZUMAB
     Dosage: UNK
     Route: 058
     Dates: start: 20160705
  41. INFLUENZA VACCINE [Suspect]
     Active Substance: INFLUENZA VIRUS VACCINE
     Indication: VIRAL INFECTION
     Route: 065
  42. SINGULAIR [Concomitant]
     Active Substance: MONTELUKAST SODIUM
     Indication: PRODUCT USED FOR UNKNOWN INDICATION
     Route: 065
  43. XOLAIR [Suspect]
     Active Substance: OMALIZUMAB
     Dosage: UNK
     Route: 058
     Dates: start: 20160426
  44. XOLAIR [Suspect]
     Active Substance: OMALIZUMAB
     Dosage: 150 MG, BIW
     Route: 058
  45. XOLAIR [Suspect]
     Active Substance: OMALIZUMAB
     Dosage: 300 MG, BIW
     Route: 058
  46. XOLAIR [Suspect]
     Active Substance: OMALIZUMAB
     Dosage: UNK
     Route: 058
     Dates: start: 20180109
  47. XOLAIR [Suspect]
     Active Substance: OMALIZUMAB
     Dosage: UNK
     Route: 058
     Dates: start: 20180307
  48. XOLAIR [Suspect]
     Active Substance: OMALIZUMAB
     Dosage: 300 MG, BIW
     Route: 058
     Dates: start: 20180321
  49. XOLAIR [Suspect]
     Active Substance: OMALIZUMAB
     Dosage: 300 MG, BIW
     Route: 058
     Dates: start: 20200117
  50. DILTIAZEM. [Suspect]
     Active Substance: DILTIAZEM
     Indication: BLOOD PRESSURE ABNORMAL
     Dosage: 120 MG, QD
     Route: 065

REACTIONS (52)
  - Palpitations [Unknown]
  - Pneumonia viral [Recovered/Resolved]
  - Body temperature decreased [Unknown]
  - Chills [Unknown]
  - Dizziness [Not Recovered/Not Resolved]
  - Headache [Unknown]
  - Chest pain [Recovered/Resolved]
  - Weight decreased [Unknown]
  - Blood count abnormal [Not Recovered/Not Resolved]
  - Pain [Not Recovered/Not Resolved]
  - Influenza [Unknown]
  - Ear infection [Unknown]
  - Heart rate decreased [Unknown]
  - Hypotension [Unknown]
  - Vomiting [Unknown]
  - Swelling [Unknown]
  - Nasopharyngitis [Unknown]
  - Urticaria [Not Recovered/Not Resolved]
  - Malaise [Not Recovered/Not Resolved]
  - Rales [Unknown]
  - Pancreatic cyst [Unknown]
  - Uterine cyst [Unknown]
  - Injection site haematoma [Recovering/Resolving]
  - Pruritus [Unknown]
  - Influenza like illness [Recovering/Resolving]
  - Myalgia [Not Recovered/Not Resolved]
  - Swelling face [Not Recovered/Not Resolved]
  - Nasal congestion [Unknown]
  - Oropharyngeal pain [Unknown]
  - Asthma [Unknown]
  - Rhinovirus infection [Recovered/Resolved]
  - Blood glucose increased [Not Recovered/Not Resolved]
  - Asthenia [Not Recovered/Not Resolved]
  - Fall [Unknown]
  - Forced expiratory volume decreased [Unknown]
  - Joint swelling [Not Recovered/Not Resolved]
  - Peripheral swelling [Unknown]
  - Pyrexia [Recovered/Resolved]
  - Contusion [Recovering/Resolving]
  - Injection site bruising [Recovering/Resolving]
  - Wheezing [Unknown]
  - Bronchitis [Unknown]
  - Abdominal distension [Unknown]
  - Dry throat [Unknown]
  - Blood pressure increased [Recovering/Resolving]
  - Respiratory tract infection [Unknown]
  - Pneumonitis [Unknown]
  - Cough [Not Recovered/Not Resolved]
  - Abdominal pain [Unknown]
  - Pain in extremity [Unknown]
  - Arthralgia [Not Recovered/Not Resolved]
  - Nausea [Unknown]

NARRATIVE: CASE EVENT DATE: 20130812
